FAERS Safety Report 6025806-7 (Version None)
Quarter: 2009Q1

REPORT INFORMATION
  Report Type: 
  Country: None (occurrence: None)
  Receive Date: 20090102
  Receipt Date: 20081223
  Transmission Date: 20090719
  Serious: Yes (Hospitalization)
  Sender: FDA-Public Use
  Company Number: KR-JNJFOC-20081206192

PATIENT
  Sex: Female

DRUGS (14)
  1. ULTRACET [Suspect]
     Indication: INTERVERTEBRAL DISC DISORDER
     Route: 048
  2. ASPIRIN [Concomitant]
     Indication: HYPERTENSION
     Route: 048
  3. TEVETEN [Concomitant]
     Indication: HYPERTENSION
     Route: 048
  4. LIPITOR [Concomitant]
     Indication: HYPERLIPIDAEMIA
     Route: 048
  5. RIVOTRIL [Concomitant]
     Indication: PARAESTHESIA
     Route: 048
  6. AFLEST [Concomitant]
     Indication: MUSCLE RELAXANT THERAPY
     Route: 048
  7. GASTREX [Concomitant]
     Indication: GASTROINTESTINAL DISORDER THERAPY
     Route: 048
  8. MOTILIUM [Concomitant]
     Indication: GASTROINTESTINAL DISORDER THERAPY
     Route: 048
  9. LANSTON [Concomitant]
     Indication: GASTROINTESTINAL DISORDER THERAPY
     Route: 048
  10. GLIPTIDE [Concomitant]
     Indication: GASTROINTESTINAL DISORDER THERAPY
     Route: 048
  11. GASMOTIN [Concomitant]
     Indication: GASTROINTESTINAL DISORDER THERAPY
     Route: 048
  12. OXYBUTYNIN CHLORIDE [Concomitant]
     Indication: URINARY INCONTINENCE
     Route: 048
  13. IMIPRAMINE HYDROCHLORIDE [Concomitant]
     Indication: DEPRESSION
     Route: 048
  14. OSCAL [Concomitant]
     Indication: OSTEOPOROSIS
     Route: 048

REACTIONS (5)
  - BLOOD PRESSURE DECREASED [None]
  - FATIGUE [None]
  - LOSS OF CONSCIOUSNESS [None]
  - NERVOUSNESS [None]
  - SHOCK [None]
